FAERS Safety Report 21445000 (Version 1)
Quarter: 2022Q4

REPORT INFORMATION
  Report Type: Spontaneous
  Country: US (occurrence: US)
  Receive Date: 20221012
  Receipt Date: 20221012
  Transmission Date: 20230113
  Serious: No
  Sender: FDA-Public Use
  Company Number: US-JNJFOC-20220954148

PATIENT
  Sex: Female

DRUGS (1)
  1. MOTRIN [Suspect]
     Active Substance: IBUPROFEN
     Indication: Product used for unknown indication
     Dosage: TOOK MORE THAN THE 6 BECAUSE I SCREWED UP AND DIDN^T REALIZE SHE^D ALREADY TAKEN 3 ON TOP OF THE FIR
     Route: 065

REACTIONS (1)
  - Accidental overdose [Unknown]
